FAERS Safety Report 17759424 (Version 3)
Quarter: 2020Q2

REPORT INFORMATION
  Report Type: Spontaneous
  Country: US (occurrence: US)
  Receive Date: 20200508
  Receipt Date: 20200624
  Transmission Date: 20200714
  Serious: Yes (Hospitalization, Other)
  Sender: FDA-Public Use
  Company Number: US-AUROBINDO-AUR-APL-2020-022172

PATIENT
  Sex: Female
  Weight: 91 kg

DRUGS (2)
  1. METOPROLOL 25MG [Suspect]
     Active Substance: METOPROLOL
     Indication: ATRIAL FIBRILLATION
     Dosage: UNK
     Route: 065
     Dates: start: 20180827, end: 20190525
  2. WARFARIN [Suspect]
     Active Substance: WARFARIN
     Indication: PRODUCT USED FOR UNKNOWN INDICATION
     Dosage: 5 MILLIGRAM, ONCE A DAY, STILL HOPING TO GET IT OFF
     Route: 065
     Dates: start: 20180827

REACTIONS (2)
  - Atrial fibrillation [Recovering/Resolving]
  - Cardiomegaly [Recovering/Resolving]
